FAERS Safety Report 5987588-4 (Version None)
Quarter: 2008Q4

REPORT INFORMATION
  Report Type: 
  Country: None (occurrence: None)
  Receive Date: 20081209
  Receipt Date: 20081125
  Transmission Date: 20090506
  Serious: Yes (Hospitalization)
  Sender: FDA-Public Use
  Company Number: DE-GENENTECH-265050

PATIENT
  Sex: Female

DRUGS (11)
  1. BEVACIZUMAB [Suspect]
     Indication: BREAST CANCER METASTATIC
     Dosage: 10 MG/KG, Q2W
     Route: 042
     Dates: start: 20070828
  2. PACLITAXEL [Suspect]
     Indication: BREAST CANCER METASTATIC
     Dosage: 75 MG/M2, 1/WEEK
     Route: 042
     Dates: start: 20070828
  3. HYDROCODONE BITARTRATE [Concomitant]
     Indication: DRUG USE FOR UNKNOWN INDICATION
  4. LEVOTHYROXINE SODIUM [Concomitant]
     Indication: DRUG USE FOR UNKNOWN INDICATION
     Dosage: UNK
  5. MIRTAZAPINE [Concomitant]
     Indication: DRUG USE FOR UNKNOWN INDICATION
     Dosage: UNK
  6. PANTOZOL [Concomitant]
     Indication: DRUG USE FOR UNKNOWN INDICATION
     Dosage: UNK
  7. RAMIPRIL [Concomitant]
     Indication: DRUG USE FOR UNKNOWN INDICATION
  8. TRAMADOL HCL [Concomitant]
     Indication: DRUG USE FOR UNKNOWN INDICATION
  9. SPIRONOLACTONE [Concomitant]
     Indication: DRUG USE FOR UNKNOWN INDICATION
  10. LACTULOSE [Concomitant]
     Indication: DRUG USE FOR UNKNOWN INDICATION
     Dosage: UNK
  11. DOXORUBICIN HCL [Concomitant]
     Indication: DRUG USE FOR UNKNOWN INDICATION
     Dosage: UNK
     Dates: start: 20080627

REACTIONS (2)
  - CATHETER RELATED COMPLICATION [None]
  - SKIN NECROSIS [None]
